FAERS Safety Report 7611958-1 (Version None)
Quarter: 2011Q3

REPORT INFORMATION
  Report Type: 
  Country: None (occurrence: None)
  Receive Date: 20110715
  Receipt Date: 20110711
  Transmission Date: 20111222
  Serious: Yes (Death, Other)
  Sender: FDA-Public Use
  Company Number: US-ABBOTT-11P-163-0837588-00

PATIENT
  Sex: Female
  Weight: 38.59 kg

DRUGS (8)
  1. METHOTREXATE [Concomitant]
     Indication: RHEUMATOID ARTHRITIS
     Route: 048
  2. LIPITOR [Concomitant]
     Indication: BLOOD CHOLESTEROL INCREASED
  3. HUMIRA [Suspect]
     Indication: RHEUMATOID ARTHRITIS
     Route: 058
     Dates: start: 20031201, end: 20041201
  4. HUMIRA [Suspect]
     Route: 058
     Dates: start: 20090501, end: 20110601
  5. VITAMINS AND SUPPLEMENTS [Concomitant]
     Indication: PRODUCT USED FOR UNKNOWN INDICATION
  6. PREDNISONE [Concomitant]
     Indication: RHEUMATOID ARTHRITIS
  7. LORTAB [Concomitant]
     Indication: ARTHRALGIA
     Dosage: DAILY
  8. NIFEDIPINE [Concomitant]
     Indication: HYPERTENSION

REACTIONS (5)
  - RECTAL PROLAPSE [None]
  - INFECTION [None]
  - POST PROCEDURAL COMPLICATION [None]
  - IMPAIRED HEALING [None]
  - INTESTINAL OBSTRUCTION [None]
